FAERS Safety Report 6815257-7 (Version None)
Quarter: 2010Q2

REPORT INFORMATION
  Report Type: 
  Country: None (occurrence: None)
  Receive Date: 20100629
  Receipt Date: 20100618
  Transmission Date: 20101027
  Serious: Yes (Other)
  Sender: FDA-Public Use
  Company Number: DSJ-2010-10100

PATIENT
  Age: 73 Year
  Sex: Female

DRUGS (4)
  1. OLMESARTAN MEDOXOMIL [Suspect]
     Indication: HYPERTENSION
     Dosage: 20 MG (20 MG, 1 IN 1 D), PER ORAL
     Route: 048
     Dates: start: 20080925, end: 20100614
  2. NORVASC [Concomitant]
  3. EURODIN (DIHYDROERGOCRISTINE MESILATE) (DIHYDROERGOCRISTINE MESILATE) [Concomitant]
  4. STAYBLA [IMIDAFENACIN] (TABLET) [Concomitant]

REACTIONS (1)
  - PLATELET COUNT DECREASED [None]
